FAERS Safety Report 23355204 (Version 1)
Quarter: 2024Q1

REPORT INFORMATION
  Report Type: Spontaneous
  Country: GR (occurrence: GR)
  Receive Date: 20240102
  Receipt Date: 20240102
  Transmission Date: 20240410
  Serious: Yes (Hospitalization)
  Sender: FDA-Public Use
  Company Number: GR-ELI_LILLY_AND_COMPANY-GR202312008770

PATIENT
  Age: 45 Year
  Sex: Male
  Weight: 102 kg

DRUGS (1)
  1. OLANZAPINE PAMOATE [Suspect]
     Active Substance: OLANZAPINE PAMOATE
     Indication: Schizophrenia
     Dosage: 300 MG, MONTHLY (1/M), ONGOING, INJECTION WAS ADMINISTERED IN UPPER OUTER QUADRANT OF BUTTOCK
     Route: 030
     Dates: start: 2022

REACTIONS (9)
  - Balance disorder [Recovering/Resolving]
  - Hyperhidrosis [Recovering/Resolving]
  - Flushing [Recovering/Resolving]
  - Illusion [Recovering/Resolving]
  - Headache [Recovering/Resolving]
  - Blood pressure systolic decreased [Recovered/Resolved]
  - Post-injection delirium sedation syndrome [Recovering/Resolving]
  - Dizziness [Recovering/Resolving]
  - Dysarthria [Recovering/Resolving]

NARRATIVE: CASE EVENT DATE: 20231212
